FAERS Safety Report 6015541-3 (Version None)
Quarter: 2008Q4

REPORT INFORMATION
  Report Type: 
  Country: None (occurrence: None)
  Receive Date: 20081216
  Receipt Date: 20081003
  Transmission Date: 20090506
  Serious: Yes (Other)
  Sender: FDA-Public Use
  Company Number: US-WYE-H06275808

PATIENT
  Age: 56 Year
  Sex: Female

DRUGS (1)
  1. EFFEXOR XR [Suspect]
     Dosage: 300 MG 2X PER 1 DAY, ORAL
     Route: 048

REACTIONS (1)
  - SUICIDE ATTEMPT [None]
